FAERS Safety Report 12923186 (Version 2)
Quarter: 2016Q4

REPORT INFORMATION
  Report Type: Spontaneous
  Country: JP (occurrence: JP)
  Receive Date: 20161109
  Receipt Date: 20161208
  Transmission Date: 20170207
  Serious: No
  Sender: FDA-Public Use
  Company Number: JP-AMGEN-JPNSP2016157528

PATIENT
  Age: 57 Year
  Sex: Female
  Weight: 57.9 kg

DRUGS (6)
  1. OXALIPLATIN. [Concomitant]
     Active Substance: OXALIPLATIN
     Indication: COLON CANCER
     Dosage: 135 MG, Q2WK
     Route: 041
     Dates: start: 20160727, end: 20161005
  2. 5-FU                               /00098801/ [Concomitant]
     Active Substance: FLUOROURACIL
     Dosage: 3900 MG, Q2WEEKS
     Route: 041
     Dates: start: 20160726, end: 20161005
  3. ELPLAT [Concomitant]
     Active Substance: OXALIPLATIN
     Indication: COLON CANCER
     Dosage: 135 MG, Q2WEEKS
     Route: 041
     Dates: start: 20160727, end: 20161005
  4. 5-FU                               /00098801/ [Concomitant]
     Active Substance: FLUOROURACIL
     Indication: COLON CANCER
     Dosage: 650 MG, Q2WEEKS
     Route: 040
     Dates: start: 20160727, end: 20161005
  5. VECTIBIX [Suspect]
     Active Substance: PANITUMUMAB
     Indication: COLON CANCER
     Dosage: 350 MG, Q2WK
     Route: 041
     Dates: start: 20160727, end: 20161005
  6. CALCIUM LEVOFOLINATE [Concomitant]
     Active Substance: LEVOLEUCOVORIN CALCIUM
     Indication: COLON CANCER
     Dosage: 325 MG, Q2WEEKS
     Route: 041
     Dates: start: 20160727

REACTIONS (1)
  - Skin disorder [Recovered/Resolved]

NARRATIVE: CASE EVENT DATE: 20160824
